FAERS Safety Report 25453270 (Version 1)
Quarter: 2025Q2

REPORT INFORMATION
  Report Type: Report from Study
  Country: US (occurrence: US)
  Receive Date: 20250618
  Receipt Date: 20250618
  Transmission Date: 20250717
  Serious: Yes (Other)
  Sender: ABBVIE
  Company Number: US-ABBVIE-6330206

PATIENT
  Age: 65 Year
  Sex: Female

DRUGS (1)
  1. CREON [Suspect]
     Active Substance: PANCRELIPASE AMYLASE\PANCRELIPASE LIPASE\PANCRELIPASE PROTEASE
     Indication: Product used for unknown indication
     Route: 048
     Dates: start: 20250215

REACTIONS (4)
  - Mesenteric arterial occlusion [Unknown]
  - Blood urine present [Unknown]
  - Nephrolithiasis [Unknown]
  - Coeliac artery occlusion [Unknown]

NARRATIVE: CASE EVENT DATE: 20250606
